FAERS Safety Report 11577800 (Version 1)
Quarter: 2015Q3

REPORT INFORMATION
  Report Type: Spontaneous
  Country: US (occurrence: US)
  Receive Date: 20150916
  Receipt Date: 20150916
  Transmission Date: 20151125
  Serious: No
  Sender: FDA-Public Use
  Company Number: US-ELI_LILLY_AND_COMPANY-US201306006883

PATIENT
  Sex: Female
  Weight: 101.59 kg

DRUGS (1)
  1. HUMALOG [Suspect]
     Active Substance: INSULIN LISPRO

REACTIONS (3)
  - Blood glucose increased [Unknown]
  - Hypersensitivity [Unknown]
  - Skin irritation [Unknown]
